FAERS Safety Report 4987955-1 (Version None)
Quarter: 2006Q2

REPORT INFORMATION
  Report Type: 
  Country: None (occurrence: None)
  Receive Date: 20060424
  Receipt Date: 20060417
  Transmission Date: 20061013
  Serious: Yes (Death, Life-Threatening, Hospitalization)
  Sender: FDA-Public Use
  Company Number: CERZ-11166

PATIENT
  Age: 20 Year
  Sex: Male
  Weight: 65 kg

DRUGS (5)
  1. CEREZYME [Suspect]
     Indication: GAUCHER'S DISEASE
     Dosage: 3800 UNITS Q2WKS IV
     Route: 042
     Dates: start: 20051117, end: 20060227
  2. ANTICONVULSANT [Concomitant]
  3. TOPIROMATO [Concomitant]
  4. AMANTADINE HCL [Concomitant]
  5. CLONAZEPAM [Concomitant]

REACTIONS (14)
  - BRADYCARDIA [None]
  - CARDIAC FAILURE [None]
  - CONVULSION [None]
  - CYANOSIS [None]
  - LOWER RESPIRATORY TRACT INFECTION [None]
  - MYOCLONIC EPILEPSY [None]
  - PNEUMONIA PNEUMOCOCCAL [None]
  - RENAL FAILURE [None]
  - SEPSIS [None]
  - SEPTIC SHOCK [None]
  - STAPHYLOCOCCAL INFECTION [None]
  - TACHYCARDIA [None]
  - URINARY TRACT INFECTION [None]
  - VIRAL INFECTION [None]
